FAERS Safety Report 8816417 (Version 1)
Quarter: 2012Q4

REPORT INFORMATION
  Report Type: Spontaneous
  Country: US (occurrence: None)
  Receive Date: 20120928
  Receipt Date: 20120928
  Transmission Date: 20130627
  Serious: Yes (Hospitalization)
  Sender: FDA-Public Use
  Company Number: None

PATIENT
  Age: 50 Year
  Sex: Male
  Weight: 77.11 kg

DRUGS (2)
  1. KRYSTEXXA [Suspect]
     Indication: GOUTY TOPHUS
     Dates: start: 20120815, end: 20120829
  2. HYDROCORTISONE [Concomitant]

REACTIONS (3)
  - Anaphylactic reaction [None]
  - Pyrexia [None]
  - Infusion related reaction [None]
